FAERS Safety Report 6700683-7 (Version None)
Quarter: 2010Q2

REPORT INFORMATION
  Report Type: 
  Country: None (occurrence: None)
  Receive Date: 20100428
  Receipt Date: 20100423
  Transmission Date: 20101027
  Serious: Yes (Death, Other)
  Sender: FDA-Public Use
  Company Number: PHHY2010US25142

PATIENT
  Sex: Male

DRUGS (6)
  1. GLEEVEC [Suspect]
     Dosage: 600 MG DAILY
     Route: 048
     Dates: start: 20091018
  2. GLEEVEC [Suspect]
     Dosage: 400 MG DAILY
     Route: 048
  3. HYDROCHLOROTHIAZIDE [Suspect]
     Indication: BLOOD PRESSURE MANAGEMENT
     Dosage: 25 MG DAILY
     Route: 048
  4. LOVASTATIN [Concomitant]
     Indication: BLOOD CHOLESTEROL INCREASED
     Dosage: 20 MG DAILY
     Route: 048
  5. NEXIUM [Concomitant]
     Indication: GASTROOESOPHAGEAL REFLUX DISEASE
     Dosage: 40 MG DAILY
     Route: 048
  6. POTASSIUM CHLORIDE [Concomitant]
     Indication: BLOOD POTASSIUM DECREASED
     Dosage: 10 MG DAILY
     Route: 048

REACTIONS (3)
  - GASTROINTESTINAL STROMAL TUMOUR [None]
  - MALIGNANT NEOPLASM PROGRESSION [None]
  - SUDDEN DEATH [None]
